FAERS Safety Report 9369877 (Version 1)
Quarter: 2013Q2

REPORT INFORMATION
  Report Type: Spontaneous
  Country: US (occurrence: US)
  Receive Date: 20130626
  Receipt Date: 20130626
  Transmission Date: 20140414
  Serious: No
  Sender: FDA-Public Use
  Company Number: US-PFIZER INC-2013186008

PATIENT
  Age: 73 Year
  Sex: Female
  Weight: 56.24 kg

DRUGS (3)
  1. LIPITOR [Suspect]
     Indication: BLOOD CHOLESTEROL INCREASED
     Dosage: 10 MG, 1X/DAY
     Route: 048
     Dates: start: 201101
  2. LIPITOR [Suspect]
     Dosage: 5 MG, 1X/DAY
  3. LIPITOR [Suspect]
     Dosage: 5 MG, ALTERNATE DAY
     Dates: end: 201103

REACTIONS (2)
  - Myalgia [Recovered/Resolved]
  - Muscular weakness [Recovered/Resolved]
